FAERS Safety Report 9222660 (Version 1)
Quarter: 2013Q1

REPORT INFORMATION
  Report Type: Spontaneous
  Country: US (occurrence: US)
  Receive Date: 20120914
  Receipt Date: 20120914
  Transmission Date: 20140127
  Serious: Yes (Hospitalization)
  Sender: FDA-Public Use
  Company Number: JPI-P-017069

PATIENT
  Age: 38 Year
  Sex: Female

DRUGS (2)
  1. XYREM (500 MG/ML SOLUTION)(SODIUM OXYBATE) [Suspect]
     Indication: HYPERSOMNIA
     Dosage: TWO DOSES OF 2.25 GM TAKEN NIGHTLY/AT BEDTIME.
     Route: 048
     Dates: start: 20110510, end: 2011
  2. DULOXETINE HYDROCHLORIDE [Concomitant]

REACTIONS (5)
  - Thinking abnormal [None]
  - Abnormal behaviour [None]
  - Suicidal ideation [None]
  - Depression [None]
  - Inappropriate schedule of drug administration [None]
